FAERS Safety Report 7411310-8 (Version None)
Quarter: 2011Q2

REPORT INFORMATION
  Report Type: 
  Country: None (occurrence: None)
  Receive Date: 20110413
  Receipt Date: 20100608
  Transmission Date: 20111010
  Serious: No
  Sender: FDA-Public Use
  Company Number: US-BRISTOL-MYERS SQUIBB COMPANY-15139041

PATIENT
  Age: 67 Year
  Sex: Male
  Weight: 68 kg

DRUGS (4)
  1. CHEMOTHERAPY [Concomitant]
  2. ERBITUX [Suspect]
     Indication: PROSTATE CANCER
     Dosage: LAST INFUSION ON 04JUN2010
     Route: 042
  3. VITAMIN TAB [Concomitant]
  4. ACETAMINOPHEN [Concomitant]

REACTIONS (6)
  - DECREASED APPETITE [None]
  - ASTHENIA [None]
  - RASH [None]
  - NAUSEA [None]
  - DYSPNOEA [None]
  - GASTROOESOPHAGEAL REFLUX DISEASE [None]
